FAERS Safety Report 10637890 (Version 1)
Quarter: 2014Q4

REPORT INFORMATION
  Report Type: Spontaneous
  Country: AU (occurrence: AU)
  Receive Date: 20141208
  Receipt Date: 20141208
  Transmission Date: 20150529
  Serious: Yes (Other)
  Sender: FDA-Public Use
  Company Number: AU-PFIZER INC-2014332601

PATIENT
  Sex: Female

DRUGS (1)
  1. TRIPHASIL [Suspect]
     Active Substance: ETHINYL ESTRADIOL\LEVONORGESTREL

REACTIONS (2)
  - Papilloedema [Unknown]
  - Tinnitus [Unknown]
